FAERS Safety Report 8361648-5 (Version None)
Quarter: 2012Q2

REPORT INFORMATION
  Report Type: 
  Country: None (occurrence: None)
  Receive Date: 20120515
  Receipt Date: 20120430
  Transmission Date: 20120825
  Serious: Yes (Other)
  Sender: FDA-Public Use
  Company Number: DE-WATSON-2012-07819

PATIENT
  Age: 55 Year
  Sex: Female
  Weight: 69 kg

DRUGS (2)
  1. FLUVOXAMINE MALEATE [Suspect]
     Indication: SCHIZOPHRENIA
     Dosage: 150 MG, DAILY
     Route: 048
  2. FLUVOXAMINE MALEATE [Suspect]
     Indication: OBSESSIVE-COMPULSIVE DISORDER

REACTIONS (3)
  - HYPOKALAEMIA [None]
  - ELECTROCARDIOGRAM ABNORMAL [None]
  - LONG QT SYNDROME [None]
